FAERS Safety Report 8127158-5 (Version None)
Quarter: 2012Q1

REPORT INFORMATION
  Report Type: 
  Country: None (occurrence: None)
  Receive Date: 20120210
  Receipt Date: 20120206
  Transmission Date: 20120608
  Serious: Yes (Other)
  Sender: FDA-Public Use
  Company Number: US-PFIZER INC-2012033102

PATIENT
  Sex: Female

DRUGS (1)
  1. LYRICA [Suspect]
     Dosage: UNK

REACTIONS (6)
  - PARAPLEGIA [None]
  - HYPOTHYROIDISM [None]
  - CARDIAC MURMUR [None]
  - FIBROMYALGIA [None]
  - ADRENAL INSUFFICIENCY [None]
  - SPINAL CORD DISORDER [None]
